FAERS Safety Report 7052731-5 (Version None)
Quarter: 2010Q4

REPORT INFORMATION
  Report Type: 
  Country: None (occurrence: None)
  Receive Date: 20101019
  Receipt Date: 20101008
  Transmission Date: 20110411
  Serious: Yes (Hospitalization)
  Sender: FDA-Public Use
  Company Number: AU-MERCK-1010USA00867

PATIENT
  Age: 68 Year
  Sex: Male

DRUGS (1)
  1. FOSAMAX [Suspect]
     Route: 048
     Dates: start: 20030827, end: 20100827

REACTIONS (5)
  - DUODENITIS [None]
  - GASTRITIS [None]
  - HAEMATEMESIS [None]
  - MALLORY-WEISS SYNDROME [None]
  - MELAENA [None]
